FAERS Safety Report 4688104-X (Version None)
Quarter: 2005Q2

REPORT INFORMATION
  Report Type: 
  Country: None (occurrence: None)
  Receive Date: 20050609
  Receipt Date: 20050527
  Transmission Date: 20051028
  Serious: Yes (Hospitalization, Other)
  Sender: FDA-Public Use
  Company Number: 2005081279

PATIENT
  Sex: Male
  Weight: 77.5651 kg

DRUGS (6)
  1. CELEBREX [Suspect]
     Indication: HIP FRACTURE
     Dosage: ORAL
     Route: 048
     Dates: end: 20040101
  2. PLAVIX [Suspect]
     Indication: ANTICOAGULANT THERAPY
     Dosage: 75 MG (75 MG, 1 IN 1 D), ORAL
     Route: 048
  3. RANITIDINE HCL [Concomitant]
  4. FUROSEMIDE [Concomitant]
  5. ALTACE [Concomitant]
  6. ALPRAZOLAM [Concomitant]

REACTIONS (8)
  - ASTHENIA [None]
  - COLONIC OBSTRUCTION [None]
  - DRUG INEFFECTIVE [None]
  - EPISTAXIS [None]
  - FEELING ABNORMAL [None]
  - HERNIA [None]
  - HYPOAESTHESIA [None]
  - PARAESTHESIA [None]
